FAERS Safety Report 7455279-9 (Version None)
Quarter: 2011Q2

REPORT INFORMATION
  Report Type: 
  Country: None (occurrence: None)
  Receive Date: 20110503
  Receipt Date: 20110419
  Transmission Date: 20111010
  Serious: Yes (Other)
  Sender: FDA-Public Use
  Company Number: IN-MYLANLABS-2011S1008277

PATIENT
  Age: 43 Year
  Sex: Female

DRUGS (1)
  1. ONDANSETRON [Suspect]
     Route: 041

REACTIONS (3)
  - LOSS OF CONSCIOUSNESS [None]
  - SINUS BRADYCARDIA [None]
  - RESPIRATORY ARREST [None]
